FAERS Safety Report 21956375 (Version 1)
Quarter: 2023Q1

REPORT INFORMATION
  Report Type: Spontaneous
  Country: FR (occurrence: None)
  Receive Date: 20230206
  Receipt Date: 20230206
  Transmission Date: 20230417
  Serious: Yes (Death)
  Sender: FDA-Public Use
  Company Number: 2023A030207

PATIENT
  Age: 80 Year
  Sex: Male

DRUGS (2)
  1. CALQUENCE [Suspect]
     Active Substance: ACALABRUTINIB
     Indication: Chronic lymphocytic leukaemia
     Route: 048
     Dates: start: 20220929, end: 20221026
  2. AUGMENTIN [Concomitant]
     Active Substance: AMOXICILLIN\CLAVULANATE POTASSIUM

REACTIONS (7)
  - Aspergillus infection [Fatal]
  - Headache [Fatal]
  - Insomnia [Fatal]
  - Monoplegia [Fatal]
  - Weight decreased [Fatal]
  - Decreased appetite [Fatal]
  - Dysstasia [Fatal]
